FAERS Safety Report 7942671-9 (Version None)
Quarter: 2011Q4

REPORT INFORMATION
  Report Type: 
  Country: None (occurrence: None)
  Receive Date: 20111128
  Receipt Date: 20111118
  Transmission Date: 20120403
  Serious: Yes (Other)
  Sender: FDA-Public Use
  Company Number: GB-PFIZER INC-2011267754

PATIENT
  Age: 70 Year
  Sex: Female

DRUGS (5)
  1. BEZAFIBRATE [Suspect]
     Dosage: UNK
  2. ATORVASTATIN CALCIUM [Suspect]
     Dosage: 80 MG, UNK
  3. OMACOR [Suspect]
     Dosage: 4000 MG, 1X/DAY
     Dates: start: 20110701, end: 20110823
  4. ATORVASTATIN CALCIUM [Suspect]
     Dosage: UNK
     Dates: start: 20110919
  5. OMACOR [Suspect]
     Indication: MYOCARDIAL INFARCTION
     Dosage: 1000 MG, UNK
     Dates: start: 20110128

REACTIONS (6)
  - ARTHRALGIA [None]
  - FATIGUE [None]
  - BLOOD BILIRUBIN INCREASED [None]
  - LIVER FUNCTION TEST ABNORMAL [None]
  - BLOOD CHOLESTEROL INCREASED [None]
  - BLOOD ALKALINE PHOSPHATASE INCREASED [None]
